FAERS Safety Report 20598150 (Version 3)
Quarter: 2023Q1

REPORT INFORMATION
  Report Type: Spontaneous
  Country: US (occurrence: None)
  Receive Date: 20220315
  Receipt Date: 20230223
  Transmission Date: 20230417
  Serious: No
  Sender: FDA-Public Use
  Company Number: US-ROCHE-2885500

PATIENT
  Age: 33 Year
  Sex: Female

DRUGS (20)
  1. XOLAIR [Suspect]
     Active Substance: OMALIZUMAB
     Indication: Idiopathic urticaria
     Route: 058
     Dates: start: 2016
  2. XOLAIR [Suspect]
     Active Substance: OMALIZUMAB
  3. XOLAIR [Suspect]
     Active Substance: OMALIZUMAB
     Indication: Urticaria chronic
  4. XOLAIR [Suspect]
     Active Substance: OMALIZUMAB
  5. ZANTAC [Concomitant]
     Active Substance: RANITIDINE HYDROCHLORIDE
     Indication: Rash
  6. ASPIRIN [Concomitant]
     Active Substance: ASPIRIN
     Indication: Face oedema
  7. ASPIRIN [Concomitant]
     Active Substance: ASPIRIN
     Indication: Oedema peripheral
  8. IBUPROFEN [Concomitant]
     Active Substance: IBUPROFEN
     Indication: Face oedema
  9. IBUPROFEN [Concomitant]
     Active Substance: IBUPROFEN
     Indication: Oedema peripheral
  10. NAPROXEN [Concomitant]
     Active Substance: NAPROXEN
     Indication: Face oedema
  11. NAPROXEN [Concomitant]
     Active Substance: NAPROXEN
     Indication: Oedema peripheral
  12. ASPIRIN [Concomitant]
     Active Substance: ASPIRIN
     Indication: Face oedema
  13. ASPIRIN [Concomitant]
     Active Substance: ASPIRIN
     Indication: Oedema peripheral
  14. OMEPRAZOLE [Concomitant]
     Active Substance: OMEPRAZOLE
     Indication: Rash
  15. OXYCODONE [Concomitant]
     Active Substance: OXYCODONE
     Indication: Rash
  16. HYDROXYZINE HYDROCHLORIDE [Concomitant]
     Active Substance: HYDROXYZINE HYDROCHLORIDE
     Dosage: 1 TO 2 PILLS AT NIGHT
  17. MICRONOR [Concomitant]
     Active Substance: NORETHINDRONE
     Route: 048
  18. TOPAMAX [Concomitant]
     Active Substance: TOPIRAMATE
     Route: 048
  19. TRIAMCINOLONE ACETONIDE [Concomitant]
     Active Substance: TRIAMCINOLONE ACETONIDE
     Indication: Eczema
     Route: 061
  20. HPV VACCINE VLP RL1 9V (YEAST) [Concomitant]
     Route: 030
     Dates: start: 20200730

REACTIONS (14)
  - Maternal exposure during pregnancy [Unknown]
  - Gastrooesophageal reflux disease [Unknown]
  - Malabsorption [Unknown]
  - Alopecia [Unknown]
  - Lumbar radiculopathy [Unknown]
  - Dizziness [Unknown]
  - Headache [Unknown]
  - Sneezing [Unknown]
  - Rhinorrhoea [Unknown]
  - Dysphonia [Unknown]
  - Iron deficiency anaemia [Unknown]
  - Constipation [Unknown]
  - Chlamydial infection [Unknown]
  - Smear cervix abnormal [Unknown]

NARRATIVE: CASE EVENT DATE: 20200716
